FAERS Safety Report 22126014 (Version 1)
Quarter: 2023Q1

REPORT INFORMATION
  Report Type: Spontaneous
  Country: US (occurrence: US)
  Receive Date: 20230322
  Receipt Date: 20230322
  Transmission Date: 20230417
  Serious: No
  Sender: FDA-Public Use
  Company Number: US-ALLERGAN-2209377US

PATIENT

DRUGS (1)
  1. LATISSE [Suspect]
     Active Substance: BIMATOPROST
     Indication: Growth of eyelashes
     Dosage: UNK, QHS
     Route: 061
     Dates: start: 202201

REACTIONS (3)
  - Eyelash changes [Unknown]
  - Drug ineffective [Unknown]
  - Product quality issue [Unknown]
